FAERS Safety Report 5972621-6 (Version None)
Quarter: 2008Q4

REPORT INFORMATION
  Report Type: 
  Country: None (occurrence: None)
  Receive Date: 20081201
  Receipt Date: 20081125
  Transmission Date: 20090506
  Serious: Yes (Hospitalization, Other)
  Sender: FDA-Public Use
  Company Number: US-BRISTOL-MYERS SQUIBB COMPANY-14397467

PATIENT
  Age: 62 Year
  Sex: Male
  Weight: 105 kg

DRUGS (3)
  1. CETUXIMAB [Suspect]
     Indication: TONSIL CANCER
     Route: 042
     Dates: start: 20080820, end: 20081110
  2. CISPLATIN [Suspect]
     Indication: TONSIL CANCER
     Route: 042
     Dates: start: 20081027
  3. RADIATION THERAPY [Suspect]
     Indication: TONSIL CANCER

REACTIONS (9)
  - ABDOMINAL PAIN [None]
  - ANOREXIA [None]
  - DYSPNOEA [None]
  - FATIGUE [None]
  - MUCOSAL INFLAMMATION [None]
  - PNEUMONIA [None]
  - PRODUCTIVE COUGH [None]
  - STRIDOR [None]
  - VOMITING [None]
